FAERS Safety Report 7512896-5 (Version None)
Quarter: 2011Q2

REPORT INFORMATION
  Report Type: 
  Country: None (occurrence: None)
  Receive Date: 20110531
  Receipt Date: 20101117
  Transmission Date: 20111010
  Serious: No
  Sender: FDA-Public Use
  Company Number: US-NOVEN-ALL1-2010-06056

PATIENT
  Sex: Male
  Weight: 34.014 kg

DRUGS (2)
  1. DAYTRANA [Suspect]
     Dosage: UNK MG, 1X/DAY:QD (1/2 OF A 20 MG PATCH)
     Route: 062
     Dates: start: 20090101
  2. DAYTRANA [Suspect]
     Dosage: UNK MG, 1X/DAY:QD (CUT 20 MG PATCH IN HALF)
     Route: 062
     Dates: start: 20090101, end: 20090101

REACTIONS (2)
  - NO ADVERSE EVENT [None]
  - WRONG TECHNIQUE IN DRUG USAGE PROCESS [None]
